FAERS Safety Report 5770736-9 (Version None)
Quarter: 2008Q2

REPORT INFORMATION
  Report Type: 
  Country: None (occurrence: None)
  Receive Date: 20080613
  Receipt Date: 20080513
  Transmission Date: 20081010
  Serious: No
  Sender: FDA-Public Use
  Company Number: US-ABBOTT-08P-163-0451535-00

PATIENT
  Sex: Female
  Weight: 29.283 kg

DRUGS (3)
  1. HUMIRA [Suspect]
     Indication: CROHN'S DISEASE
     Route: 058
     Dates: start: 20080201, end: 20080201
  2. HUMIRA [Suspect]
     Route: 058
     Dates: start: 20080215
  3. STEROIDS [Concomitant]
     Indication: CROHN'S DISEASE
     Dosage: FREQUENT INTERMITTENT COURSES
     Route: 048
     Dates: start: 20050101

REACTIONS (6)
  - GAIT DISTURBANCE [None]
  - INJECTION SITE ERYTHEMA [None]
  - INJECTION SITE PAIN [None]
  - INJECTION SITE SWELLING [None]
  - PAIN [None]
  - RASH PRURITIC [None]
